FAERS Safety Report 10372737 (Version 1)
Quarter: 2014Q3

REPORT INFORMATION
  Report Type: Spontaneous
  Country: US (occurrence: US)
  Receive Date: 20140808
  Receipt Date: 20140808
  Transmission Date: 20150326
  Serious: No
  Sender: FDA-Public Use
  Company Number: US-BRISTOL-MYERS SQUIBB COMPANY-19398288

PATIENT
  Age: 60 Year
  Sex: Female

DRUGS (1)
  1. SPRYCEL (CML) TABS 50 MG [Suspect]
     Active Substance: DASATINIB
     Indication: CHRONIC MYELOID LEUKAEMIA
     Route: 048
     Dates: start: 20100304

REACTIONS (4)
  - Paraesthesia [Unknown]
  - Diarrhoea [Unknown]
  - Blister [Unknown]
  - Dry mouth [Unknown]
